FAERS Safety Report 18540807 (Version 1)
Quarter: 2020Q4

REPORT INFORMATION
  Report Type: Spontaneous
  Country: ZA (occurrence: ZA)
  Receive Date: 20201124
  Receipt Date: 20201124
  Transmission Date: 20210114
  Serious: Yes (Life-Threatening, Hospitalization, Other)
  Sender: FDA-Public Use
  Company Number: ZA-JNJFOC-20201131914

PATIENT
  Age: 47 Year
  Sex: Male

DRUGS (1)
  1. REVELLEX [Suspect]
     Active Substance: INFLIXIMAB
     Indication: PRODUCT USED FOR UNKNOWN INDICATION
     Route: 042
     Dates: start: 20070224, end: 20200915

REACTIONS (3)
  - Ischaemic cardiomyopathy [Unknown]
  - Cardiac failure [Unknown]
  - Scrotal abscess [Unknown]

NARRATIVE: CASE EVENT DATE: 202007
